FAERS Safety Report 16471415 (Version 2)
Quarter: 2019Q3

REPORT INFORMATION
  Report Type: Report from Study
  Country: GB (occurrence: GB)
  Receive Date: 20190624
  Receipt Date: 20190717
  Transmission Date: 20191004
  Serious: Yes (Death)
  Sender: FDA-Public Use
  Company Number: GB-CELGENEUS-GBR-20190606617

PATIENT
  Age: 65 Year
  Sex: Female

DRUGS (2)
  1. CC-5013 [Suspect]
     Active Substance: LENALIDOMIDE
     Indication: CHRONIC LYMPHOCYTIC LEUKAEMIA
     Dosage: 7.5 MILLIGRAM
     Route: 048
     Dates: start: 20101129
  2. CC-5013 [Suspect]
     Active Substance: LENALIDOMIDE
     Route: 048
     Dates: end: 20170126

REACTIONS (1)
  - Acute myeloid leukaemia [Fatal]

NARRATIVE: CASE EVENT DATE: 20180211
